FAERS Safety Report 6084008-9 (Version None)
Quarter: 2009Q1

REPORT INFORMATION
  Report Type: 
  Country: None (occurrence: None)
  Receive Date: 20090219
  Receipt Date: 20090213
  Transmission Date: 20090719
  Serious: Yes (Hospitalization)
  Sender: FDA-Public Use
  Company Number: FR-BAYER-200832747GPV

PATIENT
  Age: 63 Year
  Sex: Female
  Weight: 89 kg

DRUGS (30)
  1. SORAFENIB [Suspect]
     Indication: RENAL CELL CARCINOMA
     Route: 048
     Dates: start: 20081208, end: 20081219
  2. SORAFENIB [Suspect]
     Route: 048
     Dates: start: 20081223, end: 20090209
  3. INTERFERON ALPHA 2A [Suspect]
     Indication: RENAL CELL CARCINOMA
     Route: 065
     Dates: start: 20090105, end: 20090130
  4. INTERFERON ALPHA 2A [Suspect]
     Route: 065
     Dates: start: 20081215, end: 20081219
  5. ACETAMINOPHEN AND CODEINE PHOSPHATE [Concomitant]
     Indication: PAIN
     Route: 065
     Dates: start: 20081101
  6. MOTILIUM [Concomitant]
     Indication: PROPHYLAXIS OF NAUSEA AND VOMITING
     Route: 065
     Dates: start: 20081101
  7. NEXIUM [Concomitant]
     Indication: DYSPEPSIA
     Route: 065
     Dates: start: 20081101
  8. ACTOS [Concomitant]
     Indication: DIABETES MELLITUS
     Route: 048
  9. LEVOTHYROX [Concomitant]
     Indication: HYPOTHYROIDISM
     Route: 048
     Dates: start: 20081101
  10. COTANCYL [Concomitant]
     Indication: COUGH
     Route: 065
     Dates: start: 20081110
  11. ZOMETA [Concomitant]
     Indication: HYPERCALCAEMIA
     Route: 065
     Dates: start: 20081208
  12. TRAMADOL HCL [Concomitant]
     Indication: BACK PAIN
     Route: 065
     Dates: start: 20081211, end: 20081219
  13. DOLIPRANE [Concomitant]
     Indication: BACK PAIN
     Route: 065
     Dates: start: 20081211, end: 20081219
  14. FORLAX [Concomitant]
     Indication: CONSTIPATION
     Route: 065
     Dates: start: 20081211, end: 20081211
  15. FORLAX [Concomitant]
     Route: 065
     Dates: start: 20090204
  16. NORMACOL [Concomitant]
     Indication: CONSTIPATION
     Route: 065
     Dates: start: 20081217, end: 20081217
  17. NORMACOL [Concomitant]
     Route: 065
     Dates: start: 20090203, end: 20090203
  18. PRIMPERAN [Concomitant]
     Indication: PROPHYLAXIS
     Route: 065
     Dates: start: 20090205
  19. PRIMPERAN [Concomitant]
     Route: 065
     Dates: start: 20081217, end: 20081218
  20. NOROXIN [Concomitant]
     Indication: URINARY TRACT INFECTION
     Route: 065
     Dates: start: 20081219, end: 20081221
  21. ZOPHREN [Concomitant]
     Indication: NAUSEA
     Route: 065
     Dates: start: 20090207
  22. LOVENOX [Concomitant]
     Indication: THROMBOSIS PROPHYLAXIS
     Route: 065
     Dates: start: 20090130
  23. IMODIUM [Concomitant]
     Indication: DIARRHOEA
     Route: 065
     Dates: start: 20090130
  24. LYRICA [Concomitant]
     Indication: PAIN
     Route: 065
     Dates: start: 20090131, end: 20090204
  25. TOPALGIC [Concomitant]
     Indication: PAIN
     Route: 065
     Dates: start: 20090205
  26. XYZAL [Concomitant]
     Indication: ERYTHEMA
     Route: 065
     Dates: start: 20081201
  27. ALPRAZOLAM [Concomitant]
     Indication: PROPHYLAXIS
     Route: 065
     Dates: start: 20090130
  28. AMOXICILLIN [Concomitant]
     Indication: URINARY TRACT INFECTION
     Route: 065
     Dates: start: 20090205
  29. KETOPROFEN [Concomitant]
     Indication: PAIN
     Route: 065
     Dates: start: 20090209
  30. ECONAZOLE NITRATE [Concomitant]
     Indication: FUNGAL INFECTION
     Route: 065
     Dates: start: 20090130, end: 20090131

REACTIONS (2)
  - GENERAL PHYSICAL HEALTH DETERIORATION [None]
  - LUMBAR VERTEBRAL FRACTURE [None]
